FAERS Safety Report 22023600 (Version 1)
Quarter: 2023Q1

REPORT INFORMATION
  Report Type: Spontaneous
  Country: US (occurrence: US)
  Receive Date: 20230223
  Receipt Date: 20230223
  Transmission Date: 20230418
  Serious: Yes (Other)
  Sender: FDA-Public Use
  Company Number: US-002147023-NVSC2023US035617

PATIENT
  Age: 81 Year
  Sex: Female

DRUGS (2)
  1. AMOXICILLIN\CLAVULANATE POTASSIUM [Suspect]
     Active Substance: AMOXICILLIN\CLAVULANATE POTASSIUM
     Indication: Product used for unknown indication
     Dosage: UNK, TID
     Route: 048
     Dates: start: 20220803, end: 20220810
  2. ACETAMINOPHEN [Concomitant]
     Active Substance: ACETAMINOPHEN
     Indication: Product used for unknown indication
     Dosage: 500 MG, UNK
     Route: 065

REACTIONS (7)
  - Hepatic failure [Recovering/Resolving]
  - Chromaturia [Unknown]
  - Blood bilirubin increased [Unknown]
  - Nausea [Unknown]
  - Pruritus [Unknown]
  - Pyrexia [Unknown]
  - Jaundice [Unknown]

NARRATIVE: CASE EVENT DATE: 20220813
